FAERS Safety Report 9753008 (Version 2)
Quarter: 2014Q1

REPORT INFORMATION
  Report Type: Spontaneous
  Country: US (occurrence: US)
  Receive Date: 20131213
  Receipt Date: 20140110
  Transmission Date: 20141002
  Serious: Yes (Other)
  Sender: FDA-Public Use
  Company Number: US-JNJFOC-20131203616

PATIENT
  Age: 55 Year
  Sex: Female
  Weight: 88.91 kg

DRUGS (1)
  1. NUCYNTA ER [Suspect]
     Indication: PAIN
     Route: 048
     Dates: start: 20131129, end: 20131204

REACTIONS (12)
  - Hypertension [Recovered/Resolved]
  - Tremor [Recovering/Resolving]
  - Transient ischaemic attack [Recovered/Resolved]
  - Vision blurred [Recovering/Resolving]
  - Fall [Unknown]
  - Psychomotor hyperactivity [Recovering/Resolving]
  - Hypotension [Not Recovered/Not Resolved]
  - Chest pain [Recovering/Resolving]
  - Heart rate increased [Recovered/Resolved]
  - Dyspepsia [Recovering/Resolving]
  - Palpitations [Recovering/Resolving]
  - Drug ineffective [Unknown]
